FAERS Safety Report 24789638 (Version 1)
Quarter: 2024Q4

REPORT INFORMATION
  Report Type: Report from Study
  Country: US (occurrence: US)
  Receive Date: 20241230
  Receipt Date: 20241230
  Transmission Date: 20250114
  Serious: Yes (Hospitalization)
  Sender: ROCHE
  Company Number: US-ROCHE-10000165977

PATIENT
  Age: 17 Year
  Sex: Male

DRUGS (1)
  1. HEMLIBRA [Suspect]
     Active Substance: EMICIZUMAB-KXWH
     Indication: Factor VIII deficiency
     Dosage: INJECT 0.8ML (120MG TOTAL) SUBCUTANEOUSLY EVERY 7 DAY(S)
     Route: 058

REACTIONS (2)
  - Limb injury [Unknown]
  - Peripheral swelling [Unknown]
